FAERS Safety Report 6148671-6 (Version None)
Quarter: 2009Q2

REPORT INFORMATION
  Report Type: 
  Country: None (occurrence: None)
  Receive Date: 20090406
  Receipt Date: 20090406
  Transmission Date: 20091009
  Serious: No
  Sender: FDA-Public Use
  Company Number: None

PATIENT
  Age: 36 Year
  Sex: Female
  Weight: 71.2147 kg

DRUGS (2)
  1. GABAPENTIN [Suspect]
     Indication: MIGRAINE
     Dosage: 4 PILLS DAILY -2 AM / 2 PM PO
     Route: 048
     Dates: start: 20090201, end: 20090331
  2. GABAPENTIN [Suspect]
     Indication: PETIT MAL EPILEPSY
     Dosage: 4 PILLS DAILY -2 AM / 2 PM PO
     Route: 048
     Dates: start: 20090201, end: 20090331

REACTIONS (5)
  - DRUG INEFFECTIVE [None]
  - FATIGUE [None]
  - PAIN [None]
  - THINKING ABNORMAL [None]
  - WEIGHT INCREASED [None]
